FAERS Safety Report 23705189 (Version 5)
Quarter: 2024Q4

REPORT INFORMATION
  Report Type: Report from Study
  Country: US (occurrence: US)
  Receive Date: 20240404
  Receipt Date: 20241001
  Transmission Date: 20250115
  Serious: Yes (Hospitalization, Other)
  Sender: INSMED
  Company Number: US-INSMED, INC.-2023-02069-US

PATIENT
  Age: 72 Year
  Sex: Female

DRUGS (2)
  1. ARIKAYCE [Suspect]
     Active Substance: AMIKACIN
     Indication: Mycobacterial infection
     Dosage: 590 MILLIGRAM, QD
     Route: 055
     Dates: start: 201909
  2. BACTRIM DS [Suspect]
     Active Substance: SULFAMETHOXAZOLE\TRIMETHOPRIM
     Indication: Product used for unknown indication
     Dosage: UNK, UNK
     Route: 065
     Dates: end: 202405

REACTIONS (13)
  - Hospitalisation [Unknown]
  - Pneumonia [Unknown]
  - Weight decreased [Unknown]
  - Condition aggravated [Unknown]
  - Alopecia [Unknown]
  - Chest pain [Unknown]
  - Productive cough [Unknown]
  - Rash [Not Recovered/Not Resolved]
  - Bronchoscopy [Unknown]
  - Cough [Not Recovered/Not Resolved]
  - Intentional dose omission [Unknown]
  - Therapy interrupted [Unknown]
  - Product dose omission issue [Unknown]

NARRATIVE: CASE EVENT DATE: 20231201
